FAERS Safety Report 8792284 (Version 3)
Quarter: 2012Q4

REPORT INFORMATION
  Report Type: 
  Country: US (occurrence: US)
  Receive Date: 20120918
  Receipt Date: 20121009
  Transmission Date: 20130627
  Serious: Yes (Other)
  Sender: FDA-Public Use
  Company Number: US-PFIZER INC-2012228422

PATIENT
  Age: 66 Year
  Sex: Male
  Weight: 62 kg

DRUGS (2)
  1. SUTENT [Suspect]
     Indication: RENAL CELL CARCINOMA
     Dosage: 50 mg, daily, cyclic, 28 days on, then 2 weeks off
     Dates: start: 20120716, end: 201208
  2. SUTENT [Suspect]
     Dosage: 37.5 mg, 1x/day
     Dates: start: 20120917

REACTIONS (14)
  - Aphagia [Unknown]
  - Glossodynia [Recovered/Resolved]
  - Stomatitis [Recovered/Resolved]
  - Blister [Unknown]
  - Fungal infection [Unknown]
  - Yellow skin [Unknown]
  - Oedema peripheral [Unknown]
  - Joint swelling [Unknown]
  - Cough [Not Recovered/Not Resolved]
  - Dysgeusia [Unknown]
  - Weight decreased [Unknown]
  - Dysphagia [Unknown]
  - Drug prescribing error [Unknown]
  - Hepatic enzyme increased [Unknown]
